FAERS Safety Report 13029300 (Version 1)
Quarter: 2016Q4

REPORT INFORMATION
  Report Type: Report from Study
  Country: TR (occurrence: TR)
  Receive Date: 20161215
  Receipt Date: 20161215
  Transmission Date: 20170207
  Serious: Yes (Death)
  Sender: FDA-Public Use
  Company Number: TR-ROCHE-1867506

PATIENT
  Age: 36 Year
  Sex: Male

DRUGS (1)
  1. ALTEPLASE [Suspect]
     Active Substance: ALTEPLASE
     Indication: PULMONARY EMBOLISM
     Dosage: 10-MG BOLUS FOLLOWED BY A 90-MG BOLUS
     Route: 065

REACTIONS (1)
  - Cardiac arrest [Fatal]
